FAERS Safety Report 18565079 (Version 2)
Quarter: 2020Q4

REPORT INFORMATION
  Report Type: Spontaneous
  Country: US (occurrence: US)
  Receive Date: 20201201
  Receipt Date: 20201203
  Transmission Date: 20210114
  Serious: No
  Sender: FDA-Public Use
  Company Number: US-JNJFOC-20201145062

PATIENT
  Age: 26 Year
  Sex: Female
  Weight: 81.72 kg

DRUGS (1)
  1. WOMENS ROGAINE UNSCENTED [Suspect]
     Active Substance: MINOXIDIL
     Indication: ALOPECIA
     Dosage: WHOLE CAPFUL ONCE A DAY
     Route: 061
     Dates: start: 20191101, end: 20201106

REACTIONS (6)
  - Skin irritation [Recovering/Resolving]
  - Product packaging issue [Unknown]
  - Overdose [Unknown]
  - Application site urticaria [Recovered/Resolved]
  - Product physical issue [Unknown]
  - Application site rash [Recovering/Resolving]

NARRATIVE: CASE EVENT DATE: 20191101
